FAERS Safety Report 14199260 (Version 2)
Quarter: 2017Q4

REPORT INFORMATION
  Report Type: Spontaneous
  Country: JP (occurrence: JP)
  Receive Date: 20171117
  Receipt Date: 20171127
  Transmission Date: 20180321
  Serious: Yes (Death, Hospitalization)
  Sender: FDA-Public Use
  Company Number: JP-SA-2017SA221149

PATIENT
  Age: 80 Year
  Sex: Male

DRUGS (2)
  1. IMMUNOBLADDER [Suspect]
     Active Substance: BACILLUS CALMETTE-GUERIN ANTIGEN, UNSPECIFIED SUBSTRAIN
     Indication: IMMUNISATION
     Route: 043
  2. BCG FOR IMMUNOTHERAPY [Suspect]
     Active Substance: BACILLUS CALMETTE-GUERIN ANTIGEN, UNSPECIFIED SUBSTRAIN
     Indication: IMMUNISATION
     Route: 043

REACTIONS (7)
  - Acute kidney injury [Recovering/Resolving]
  - Diarrhoea [Unknown]
  - Generalised oedema [Unknown]
  - Abdominal distension [Unknown]
  - Palpable purpura [Unknown]
  - Henoch-Schonlein purpura nephritis [Recovering/Resolving]
  - Staphylococcal sepsis [Fatal]
